FAERS Safety Report 7523105-5 (Version None)
Quarter: 2011Q2

REPORT INFORMATION
  Report Type: 
  Country: None (occurrence: None)
  Receive Date: 20110603
  Receipt Date: 20110527
  Transmission Date: 20111010
  Serious: Yes (Other)
  Sender: FDA-Public Use
  Company Number: US-CEPHALON-2011002671

PATIENT
  Sex: Female

DRUGS (1)
  1. FENTORA [Suspect]
     Indication: NEURALGIA
     Route: 002

REACTIONS (1)
  - DRUG PRESCRIBING ERROR [None]
